FAERS Safety Report 14947377 (Version 1)
Quarter: 2018Q2

REPORT INFORMATION
  Report Type: Spontaneous
  Country: US (occurrence: US)
  Receive Date: 20180529
  Receipt Date: 20180529
  Transmission Date: 20180711
  Serious: Yes (Other)
  Sender: FDA-Public Use
  Company Number: US-WEST-WARD PHARMACEUTICALS CORP.-US-H14001-17-04413

PATIENT
  Sex: Female

DRUGS (1)
  1. PREDNISONE. [Suspect]
     Active Substance: PREDNISONE
     Indication: PRODUCT USED FOR UNKNOWN INDICATION
     Route: 048

REACTIONS (8)
  - Adrenal insufficiency [Unknown]
  - Blood pressure increased [Unknown]
  - Therapeutic agent-diagnostic test interaction [Unknown]
  - Skin atrophy [Not Recovered/Not Resolved]
  - Cataract [Not Recovered/Not Resolved]
  - Anaemia [Not Recovered/Not Resolved]
  - Heart rate increased [Unknown]
  - Osteopenia [Not Recovered/Not Resolved]
